FAERS Safety Report 10700006 (Version 1)
Quarter: 2015Q1

REPORT INFORMATION
  Report Type: Report from Study
  Country: US (occurrence: US)
  Receive Date: 20150109
  Receipt Date: 20150109
  Transmission Date: 20150721
  Serious: Yes (Other)
  Sender: FDA-Public Use
  Company Number: US-JNJFOC-20150101989

PATIENT
  Sex: Female
  Weight: 68.04 kg

DRUGS (2)
  1. RESTASIS [Concomitant]
     Active Substance: CYCLOSPORINE
     Indication: EYE DISORDER
     Route: 047
  2. REMICADE [Suspect]
     Active Substance: INFLIXIMAB
     Indication: ANKYLOSING SPONDYLITIS
     Route: 042
     Dates: start: 2014

REACTIONS (2)
  - Gallbladder disorder [Recovered/Resolved]
  - Abnormal loss of weight [Not Recovered/Not Resolved]

NARRATIVE: CASE EVENT DATE: 2014
